FAERS Safety Report 4503448-X (Version None)
Quarter: 2004Q4

REPORT INFORMATION
  Report Type: 
  Country: None (occurrence: None)
  Receive Date: 20041112
  Receipt Date: 20041109
  Transmission Date: 20050328
  Serious: Yes (Hospitalization)
  Sender: FDA-Public Use
  Company Number: A400703002/AKO-4647-AE

PATIENT
  Age: 36 Year
  Sex: Female
  Weight: 54.4316 kg

DRUGS (3)
  1. FENTANYL [Suspect]
     Indication: PROCEDURAL COMPLICATION
     Dosage: 50MCG, IV
     Route: 042
     Dates: start: 20041001
  2. ANAPROX [Concomitant]
  3. SKELAXIN [Concomitant]

REACTIONS (5)
  - APHASIA [None]
  - ARRHYTHMIA [None]
  - MEDICATION ERROR [None]
  - PARALYSIS [None]
  - PROCEDURAL COMPLICATION [None]
